FAERS Safety Report 13617993 (Version 2)
Quarter: 2017Q2

REPORT INFORMATION
  Report Type: Spontaneous
  Country: JP (occurrence: JP)
  Receive Date: 20170606
  Receipt Date: 20170612
  Transmission Date: 20170830
  Serious: Yes (Death)
  Sender: FDA-Public Use
  Company Number: JP-JNJFOC-20170603593

PATIENT
  Age: 87 Year
  Sex: Male
  Weight: 55 kg

DRUGS (16)
  1. PLETAAL [Concomitant]
     Active Substance: CILOSTAZOL
     Route: 048
  2. AMARYL [Concomitant]
     Active Substance: GLIMEPIRIDE
     Route: 048
  3. ZYTIGA [Suspect]
     Active Substance: ABIRATERONE ACETATE
     Indication: HORMONE-REFRACTORY PROSTATE CANCER
     Route: 048
     Dates: start: 20170310, end: 20170430
  4. MAINTATE [Concomitant]
     Active Substance: BISOPROLOL FUMARATE
     Route: 048
  5. LOXOPROFEN NA [Concomitant]
     Active Substance: LOXOPROFEN SODIUM
     Route: 062
  6. UNISIA [Concomitant]
     Active Substance: AMLODIPINE BESYLATE\CANDESARTAN CILEXETIL
     Route: 048
  7. FLUITRAN [Concomitant]
     Active Substance: TRICHLORMETHIAZIDE
     Route: 048
  8. PREDNISOLONE. [Suspect]
     Active Substance: PREDNISOLONE
     Indication: HORMONE-REFRACTORY PROSTATE CANCER
     Route: 048
     Dates: start: 20170310, end: 20170430
  9. SPIRIVA [Concomitant]
     Active Substance: TIOTROPIUM BROMIDE MONOHYDRATE
     Route: 065
  10. FELBINAC [Concomitant]
     Active Substance: FELBINAC
     Route: 065
  11. CELECOX [Concomitant]
     Active Substance: CELECOXIB
     Route: 048
  12. ELIQUIS [Concomitant]
     Active Substance: APIXABAN
     Route: 048
  13. EDIROL [Concomitant]
     Active Substance: ELDECALCITOL
     Route: 048
  14. BAYASPIRIN [Concomitant]
     Active Substance: ASPIRIN
     Route: 048
  15. VOGLIBOSE [Concomitant]
     Active Substance: VOGLIBOSE
     Route: 048
  16. RANMARK [Concomitant]
     Active Substance: DENOSUMAB
     Route: 065

REACTIONS (1)
  - Pneumonia [Fatal]

NARRATIVE: CASE EVENT DATE: 20170430
